FAERS Safety Report 20777976 (Version 1)
Quarter: 2022Q2

REPORT INFORMATION
  Report Type: Spontaneous
  Country: FR (occurrence: FR)
  Receive Date: 20220503
  Receipt Date: 20220503
  Transmission Date: 20220721
  Serious: Yes (Other)
  Sender: FDA-Public Use
  Company Number: None

PATIENT
  Age: 93 Year
  Sex: Female
  Weight: 96 kg

DRUGS (4)
  1. FEBUXOSTAT [Suspect]
     Active Substance: FEBUXOSTAT
     Indication: Gout
     Dosage: 80 MILLIGRAM, QD
     Route: 048
     Dates: start: 20211201, end: 20211207
  2. AMOXICILLIN [Suspect]
     Active Substance: AMOXICILLIN
     Indication: Helicobacter infection
     Dosage: 3 GRAM, QD (1G 3 TIMES A DAY)
     Route: 048
     Dates: start: 20211124, end: 20211208
  3. CLARITHROMYCIN [Suspect]
     Active Substance: CLARITHROMYCIN
     Indication: Helicobacter infection
     Dosage: 1000 MILLIGRAM, QD (250MG 4 TIMES A DAY)
     Route: 048
     Dates: start: 20211124, end: 20211208
  4. METRONIDAZOLE [Suspect]
     Active Substance: METRONIDAZOLE
     Indication: Helicobacter infection
     Dosage: 1000 MILLIGRAM, QD (500MG 2 TIMES PER DAY)
     Route: 048
     Dates: start: 20211124, end: 20211208

REACTIONS (1)
  - Mixed liver injury [Recovering/Resolving]

NARRATIVE: CASE EVENT DATE: 20211208
